FAERS Safety Report 7289271-4 (Version None)
Quarter: 2011Q1

REPORT INFORMATION
  Report Type: 
  Country: None (occurrence: None)
  Receive Date: 20110211
  Receipt Date: 20110207
  Transmission Date: 20110831
  Serious: Yes (Death, Other)
  Sender: FDA-Public Use
  Company Number: SG-ROXANE LABORATORIES, INC.-2011-RO-00145RO

PATIENT
  Age: 20 Year
  Sex: Female

DRUGS (10)
  1. BUSULFAN [Suspect]
     Indication: CENTRAL NERVOUS SYSTEM LYMPHOMA
  2. MYCOPHENOLATE MOFETIL [Suspect]
     Indication: LUPUS NEPHRITIS
  3. THIOTEPA [Suspect]
     Indication: CENTRAL NERVOUS SYSTEM LYMPHOMA
  4. PROCARBAZINE [Suspect]
     Indication: CENTRAL NERVOUS SYSTEM LYMPHOMA
  5. VINCRISTINE [Suspect]
     Indication: CENTRAL NERVOUS SYSTEM LYMPHOMA
  6. ETOPOSIDE [Suspect]
     Indication: CENTRAL NERVOUS SYSTEM LYMPHOMA
  7. CYTARABINE [Suspect]
     Indication: CENTRAL NERVOUS SYSTEM LYMPHOMA
  8. CYCLOPHOSPHAMIDE [Suspect]
     Indication: CENTRAL NERVOUS SYSTEM LYMPHOMA
  9. METHOTREXATE [Suspect]
     Indication: CENTRAL NERVOUS SYSTEM LYMPHOMA
  10. RITUXIMAB [Suspect]
     Indication: CENTRAL NERVOUS SYSTEM LYMPHOMA

REACTIONS (12)
  - DISEASE PROGRESSION [None]
  - STEVENS-JOHNSON SYNDROME [None]
  - FEBRILE NEUTROPENIA [None]
  - CENTRAL NERVOUS SYSTEM LYMPHOMA [None]
  - POSTERIOR REVERSIBLE ENCEPHALOPATHY SYNDROME [None]
  - FUNGAEMIA [None]
  - HYPERTENSION [None]
  - BK VIRUS INFECTION [None]
  - STAPHYLOCOCCAL SEPSIS [None]
  - KLEBSIELLA SEPSIS [None]
  - STATUS EPILEPTICUS [None]
  - HAEMATURIA [None]
